FAERS Safety Report 12253381 (Version 2)
Quarter: 2016Q2

REPORT INFORMATION
  Report Type: Spontaneous
  Country: JP (occurrence: JP)
  Receive Date: 20160411
  Receipt Date: 20160601
  Transmission Date: 20160815
  Serious: Yes (Death, Life-Threatening, Hospitalization)
  Sender: FDA-Public Use
  Company Number: JP-SA-2016SA065213

PATIENT
  Age: 73 Year
  Sex: Male
  Weight: 67.7 kg

DRUGS (63)
  1. PLAVIX [Suspect]
     Active Substance: CLOPIDOGREL BISULFATE
     Indication: ANGINA PECTORIS
     Route: 048
     Dates: start: 20160326, end: 20160330
  2. CEFTRIAXONE SODIUM. [Concomitant]
     Active Substance: CEFTRIAXONE SODIUM
     Indication: SEPSIS
     Dosage: FORM: INTRAVENOUS 1G BAG
     Route: 042
     Dates: start: 20160228, end: 20160229
  3. GLUCOSE [Concomitant]
     Active Substance: DEXTROSE
     Indication: FLUID REPLACEMENT
     Route: 065
     Dates: start: 20160305, end: 20160319
  4. GLUCOSE [Concomitant]
     Active Substance: DEXTROSE
     Indication: FLUID REPLACEMENT
     Route: 065
     Dates: start: 20160311, end: 20160322
  5. ELECTROLYTES NOS [Concomitant]
     Active Substance: ELECTROLYTES NOS
     Indication: FLUID REPLACEMENT
     Route: 065
     Dates: start: 20160320, end: 20160322
  6. ELECTROLYTES NOS [Concomitant]
     Active Substance: ELECTROLYTES NOS
     Indication: FLUID REPLACEMENT
     Route: 065
     Dates: start: 20160323, end: 20160324
  7. MINERALS NOS [Concomitant]
     Active Substance: MINERALS
     Indication: FLUID REPLACEMENT
     Route: 065
     Dates: start: 20160306, end: 20160306
  8. PLAVIX [Suspect]
     Active Substance: CLOPIDOGREL BISULFATE
     Indication: CORONARY ARTERY STENOSIS
     Route: 048
     Dates: start: 20160326, end: 20160330
  9. LASIX [Concomitant]
     Active Substance: FUROSEMIDE
     Indication: HYPERTENSION
     Route: 042
     Dates: start: 20160223, end: 20160223
  10. ELECTROLYTES NOS [Concomitant]
     Active Substance: ELECTROLYTES NOS
     Indication: FLUID REPLACEMENT
     Dosage: SOLITA T NO 1
     Route: 065
     Dates: start: 20160301, end: 20160301
  11. SODIUM CHLORIDE. [Concomitant]
     Active Substance: SODIUM CHLORIDE
     Indication: FLUID REPLACEMENT
     Route: 065
     Dates: start: 20160301, end: 20160304
  12. AMOBANTES [Concomitant]
     Indication: INSOMNIA
     Route: 048
     Dates: start: 20160229, end: 20160313
  13. SOLULACT [Concomitant]
     Indication: FLUID REPLACEMENT
     Route: 065
     Dates: start: 20160323, end: 20160329
  14. ITOROL [Concomitant]
     Active Substance: ISOSORBIDE MONONITRATE
     Indication: ANGINA PECTORIS
     Route: 048
     Dates: start: 20160218, end: 20160229
  15. CALONAL [Concomitant]
     Active Substance: ACETAMINOPHEN
     Indication: PAIN
     Route: 048
     Dates: start: 20160324, end: 20160402
  16. AZUNOL [Concomitant]
     Active Substance: SODIUM GUALENATE
     Indication: SKIN EROSION
     Route: 061
     Dates: start: 20160301, end: 20160301
  17. BRONUCK [Concomitant]
     Active Substance: BROMFENAC SODIUM
     Indication: CATARACT
     Dosage: FORM: OPHTHALMIC SOLUTION
     Route: 047
  18. DIART [Concomitant]
     Active Substance: AZOSEMIDE
     Indication: CARDIAC FAILURE
     Route: 048
     Dates: start: 20160218, end: 20160402
  19. HUMULIN R [Concomitant]
     Active Substance: INSULIN HUMAN
     Indication: DIABETES MELLITUS
     Route: 058
     Dates: start: 20160222, end: 20160223
  20. MEROPENEM. [Concomitant]
     Active Substance: MEROPENEM
     Indication: SEPSIS
     Route: 042
     Dates: start: 20160302, end: 20160311
  21. SOLITAX-H [Concomitant]
     Indication: FLUID REPLACEMENT
     Route: 065
     Dates: start: 20160402, end: 20160402
  22. LANSOPRAZOLE. [Concomitant]
     Active Substance: LANSOPRAZOLE
     Indication: GASTROOESOPHAGEAL REFLUX DISEASE
     Route: 048
     Dates: start: 20160317, end: 20160402
  23. CATABON [Concomitant]
     Active Substance: DOPAMINE HYDROCHLORIDE
     Indication: BLOOD PRESSURE DECREASED
     Route: 042
     Dates: start: 20160331, end: 20160402
  24. ELNEOPA NO 1 [Concomitant]
     Indication: FLUID REPLACEMENT
     Route: 065
     Dates: start: 20160310, end: 20160310
  25. PLAVIX [Suspect]
     Active Substance: CLOPIDOGREL BISULFATE
     Indication: CORONARY ARTERY STENOSIS
     Route: 048
     Dates: start: 20160203, end: 20160229
  26. HUMULIN R [Concomitant]
     Active Substance: INSULIN HUMAN
     Indication: DIABETES MELLITUS
     Dosage: DOSE: 0.5-2 UNITS
     Route: 058
     Dates: start: 20160224, end: 20160227
  27. LANTUS [Concomitant]
     Active Substance: INSULIN GLARGINE
     Indication: DIABETES MELLITUS
     Dosage: DOSE:6 UNIT(S)
     Route: 058
     Dates: start: 20160220, end: 20160221
  28. BFLUID [Concomitant]
     Active Substance: AMINO ACIDS\DEXTROSE\ELECTROLYTES NOS\VITAMINS
     Indication: FLUID REPLACEMENT
     Route: 065
     Dates: start: 20160224, end: 20160226
  29. CONTOMIN [Concomitant]
     Active Substance: CHLORPROMAZINE
     Indication: SCHIZOPHRENIA
     Dosage: FORM,: SUGAR COATED
     Route: 048
     Dates: start: 20160217, end: 20160228
  30. NOVORAPID [Concomitant]
     Active Substance: INSULIN ASPART
     Indication: DIABETES MELLITUS
     Route: 058
     Dates: start: 20160218, end: 20160301
  31. MEROPENEM. [Concomitant]
     Active Substance: MEROPENEM
     Indication: SEPSIS
     Dosage: I.V. INFUSION BAG 0.5G
     Route: 042
     Dates: start: 20160301, end: 20160301
  32. CERCINE [Concomitant]
     Active Substance: DIAZEPAM
     Indication: SEIZURE
     Route: 048
     Dates: start: 20160303, end: 20160309
  33. PARIET [Concomitant]
     Active Substance: RABEPRAZOLE SODIUM
     Indication: GASTROOESOPHAGEAL REFLUX DISEASE
     Route: 048
     Dates: start: 20160301, end: 20160316
  34. AMLODIPINE [Concomitant]
     Active Substance: AMLODIPINE BESYLATE
     Indication: HYPERTENSION
     Route: 048
     Dates: start: 20160301, end: 20160317
  35. LANIRAPID [Concomitant]
     Active Substance: METILDIGOXIN
     Indication: CARDIAC FAILURE
     Route: 048
     Dates: start: 20160218, end: 20160402
  36. THYRADIN-S [Concomitant]
     Active Substance: LEVOTHYROXINE
     Indication: HYPOTHYROIDISM
     Route: 048
     Dates: start: 20160218, end: 20160402
  37. HUMULIN R [Concomitant]
     Active Substance: INSULIN HUMAN
     Indication: DIABETES MELLITUS
     Dosage: DOSE: 8-24 UNITS
     Route: 058
     Dates: start: 20160228, end: 20160402
  38. BENIDIPINE HYDROCHLORIDE [Concomitant]
     Active Substance: BENIDIPINE HYDROCHLORIDE
     Indication: HYPERTENSION
     Route: 048
     Dates: start: 20160218, end: 20160229
  39. BENIDIPINE HYDROCHLORIDE [Concomitant]
     Active Substance: BENIDIPINE HYDROCHLORIDE
     Indication: HYPERTENSION
     Route: 048
     Dates: start: 20160318, end: 20160319
  40. CETILO [Concomitant]
     Active Substance: SENNA LEAF
     Indication: CONSTIPATION
     Route: 048
     Dates: start: 20160326, end: 20160328
  41. ZINC OXIDE. [Concomitant]
     Active Substance: ZINC OXIDE
     Indication: SKIN EROSION
     Route: 061
     Dates: start: 20160301, end: 20160301
  42. KARY UNI [Concomitant]
     Active Substance: PIRENOXINE
     Indication: CATARACT
     Dosage: OPHTHALMIC SUSPENSION
     Route: 047
  43. BAYASPIRIN [Concomitant]
     Active Substance: ASPIRIN
     Indication: CORONARY ARTERY STENOSIS
     Route: 048
     Dates: start: 20160331, end: 20160402
  44. ELNEOPA NO 1 [Concomitant]
     Indication: FLUID REPLACEMENT
     Route: 065
     Dates: start: 20160331, end: 20160402
  45. PLAVIX [Suspect]
     Active Substance: CLOPIDOGREL BISULFATE
     Indication: ANGINA PECTORIS
     Route: 048
     Dates: start: 20160203, end: 20160229
  46. BFLUID [Concomitant]
     Active Substance: AMINO ACIDS\DEXTROSE\ELECTROLYTES NOS\VITAMINS
     Indication: FLUID REPLACEMENT
     Route: 065
     Dates: start: 20160217, end: 20160217
  47. FULCALIQ [Concomitant]
     Active Substance: AMINO ACIDS\CARBOHYDRATES\ELECTROLYTES NOS\VITAMINS
     Indication: FLUID REPLACEMENT
  48. CERCINE [Concomitant]
     Active Substance: DIAZEPAM
     Indication: SEIZURE
     Route: 048
     Dates: start: 20160310, end: 20160321
  49. METOPIRON [Concomitant]
     Active Substance: METYRAPONE
     Indication: HYPERADRENOCORTICISM
     Route: 048
     Dates: start: 20160327, end: 20160330
  50. SIGMART [Concomitant]
     Active Substance: NICORANDIL
     Indication: ANGINA PECTORIS
     Route: 048
     Dates: start: 20160229, end: 20160401
  51. SOLITAX-H [Concomitant]
     Indication: FLUID REPLACEMENT
     Route: 065
     Dates: start: 20160325, end: 20160328
  52. BAYASPIRIN [Concomitant]
     Active Substance: ASPIRIN
     Indication: CORONARY ARTERY STENOSIS
     Route: 048
     Dates: start: 20160301, end: 20160325
  53. HUMULIN R [Concomitant]
     Active Substance: INSULIN HUMAN
     Indication: DIABETES MELLITUS
     Dosage: DOSE:8 UNIT(S)
     Route: 058
     Dates: start: 20160217, end: 20160217
  54. NITRAZEPAM [Concomitant]
     Active Substance: NITRAZEPAM
     Indication: INSOMNIA
     Route: 048
     Dates: start: 20160218, end: 20160228
  55. GLUCOSE [Concomitant]
     Active Substance: DEXTROSE
     Indication: FLUID REPLACEMENT
     Route: 065
     Dates: start: 20160227, end: 20160301
  56. GLUCOSE [Concomitant]
     Active Substance: DEXTROSE
     Indication: FLUID REPLACEMENT
     Route: 065
     Dates: start: 20160222, end: 20160223
  57. ELECTROLYTES NOS [Concomitant]
     Active Substance: ELECTROLYTES NOS
     Indication: FLUID REPLACEMENT
     Route: 065
     Dates: start: 20160222, end: 20160223
  58. ZINC OXIDE. [Concomitant]
     Active Substance: ZINC OXIDE
     Indication: SKIN EROSION
     Route: 061
     Dates: start: 20160223, end: 20160223
  59. DECADRON [Concomitant]
     Active Substance: DEXAMETHASONE
     Indication: PROPHYLAXIS
     Route: 048
     Dates: start: 20160225, end: 20160225
  60. ELECTROLYTES NOS [Concomitant]
     Active Substance: ELECTROLYTES NOS
     Indication: FLUID REPLACEMENT
     Route: 065
     Dates: start: 20160311, end: 20160322
  61. METOPIRON [Concomitant]
     Active Substance: METYRAPONE
     Indication: HYPERADRENOCORTICISM
     Route: 048
     Dates: start: 20160321, end: 20160326
  62. AZUNOL [Concomitant]
     Active Substance: SODIUM GUALENATE
     Indication: SKIN EROSION
     Route: 061
     Dates: start: 20160223, end: 20160223
  63. LANSOPRAZOLE. [Concomitant]
     Active Substance: LANSOPRAZOLE
     Indication: GASTROOESOPHAGEAL REFLUX DISEASE
     Route: 048
     Dates: start: 20160218, end: 20160229

REACTIONS (4)
  - Sepsis [Fatal]
  - Rash maculo-papular [Recovered/Resolved]
  - Flushing [Recovered/Resolved]
  - Pyrexia [Fatal]

NARRATIVE: CASE EVENT DATE: 20160227
